FAERS Safety Report 8520762 (Version 2)
Quarter: 2012Q4

REPORT INFORMATION
  Report Type: 
  Country: US (occurrence: US)
  Receive Date: 20120418
  Receipt Date: 20121204
  Transmission Date: 20130627
  Serious: No
  Sender: FDA-Public Use
  Company Number: US-ASTRAZENECA-2011SE63484

PATIENT
  Age: 61 Year
  Sex: Female

DRUGS (7)
  1. NEXIUM [Suspect]
     Route: 048
  2. NEXIUM [Suspect]
     Dosage: SOMETIMES HAS TO TAKE MORE THAN ONE CAPSULE PER DAY, SOMETIMES TAKES TWO
     Route: 048
  3. OMEPRAZOLE [Suspect]
     Route: 048
  4. CRESTOR [Concomitant]
  5. METFORMIN [Concomitant]
  6. ENALAPRIL [Concomitant]
  7. GLYBURIDE [Concomitant]

REACTIONS (3)
  - Gastrooesophageal reflux disease [Unknown]
  - Incorrect dose administered [Unknown]
  - Drug ineffective [Unknown]
